FAERS Safety Report 4930841-3 (Version None)
Quarter: 2006Q1

REPORT INFORMATION
  Report Type: 
  Country: None (occurrence: None)
  Receive Date: 20060227
  Receipt Date: 20060221
  Transmission Date: 20060701
  Serious: Yes (Life-Threatening)
  Sender: FDA-Public Use
  Company Number: 200610194BNE

PATIENT
  Age: 63 Year
  Sex: Male
  Weight: 64.6 kg

DRUGS (5)
  1. SORAFENIB [Suspect]
     Indication: METASTATIC MALIGNANT MELANOMA
     Dosage: 400 MG, BID, ORAL
     Route: 048
     Dates: start: 20050622, end: 20050712
  2. DACARBAZINE [Suspect]
     Indication: METASTATIC MALIGNANT MELANOMA
     Dates: start: 20050622
  3. RHINOLAST [Concomitant]
  4. DESLORATADINE [Concomitant]
  5. MILPAR [Concomitant]

REACTIONS (1)
  - DEEP VEIN THROMBOSIS [None]
